FAERS Safety Report 24057400 (Version 1)
Quarter: 2024Q3

REPORT INFORMATION
  Report Type: Spontaneous
  Country: US (occurrence: None)
  Receive Date: 20240706
  Receipt Date: 20240706
  Transmission Date: 20241016
  Serious: Yes (Hospitalization, Other)
  Sender: MANKIND PHARMA
  Company Number: US-MankindUS-000213

PATIENT
  Age: 77 Year
  Sex: Male

DRUGS (13)
  1. BACLOFEN [Suspect]
     Active Substance: BACLOFEN
     Indication: Back pain
     Dosage: BACLOFEN REGIMEN OF 20 MG EVERY SIX HOURS/THREE TIMES A DAY
  2. ACETAMINOPHEN [Concomitant]
     Active Substance: ACETAMINOPHEN
     Dosage: EVERY SIX HOURS AS NEEDED
  3. CALCITRIOL [Concomitant]
     Active Substance: CALCITRIOL
     Dosage: ONE TABLET A DAY
  4. CALCIUM CARBONATE [Concomitant]
     Active Substance: CALCIUM CARBONATE
     Dosage: TWO TABLETS A DAY
  5. CHOLESTYRAMINE [Concomitant]
     Active Substance: CHOLESTYRAMINE
  6. FLUOXETINE [Concomitant]
     Active Substance: FLUOXETINE HYDROCHLORIDE
     Dosage: ONE TABLE A DAY
  7. HYDRALAZINE [Concomitant]
     Active Substance: HYDRALAZINE HYDROCHLORIDE
  8. POTASSIUM CHLORIDE [Concomitant]
     Active Substance: POTASSIUM CHLORIDE
  9. ROPINIROLE [Concomitant]
     Active Substance: ROPINIROLE
     Dosage: EVERY SIX HOURS
  10. TORSEMIDE [Concomitant]
     Active Substance: TORSEMIDE
     Dosage: ONE TABLET A DAY
  11. TRAMADOL [Concomitant]
     Active Substance: TRAMADOL\TRAMADOL HYDROCHLORIDE
     Dosage: FOUR TIMES A DAY AS NEEDED
  12. VITAMIN B12 [Concomitant]
     Active Substance: CYANOCOBALAMIN
     Dosage: ONE TABLET A DAY
  13. VITAMIN D [Concomitant]
     Active Substance: VITAMIN D NOS
     Dosage: ONE TABLET A DAY

REACTIONS (2)
  - Withdrawal syndrome [Recovering/Resolving]
  - Metabolic encephalopathy [Recovering/Resolving]
